FAERS Safety Report 10752054 (Version 2)
Quarter: 2015Q1

REPORT INFORMATION
  Report Type: Spontaneous
  Country: JP (occurrence: None)
  Receive Date: 20150128
  Receipt Date: 20150303
  Transmission Date: 20150721
  Serious: Yes (Other)
  Sender: FDA-Public Use
  Company Number: 2015JP000769

PATIENT
  Sex: Male

DRUGS (5)
  1. CALTAN (CALCIUM CARBONATE) [Concomitant]
  2. FOSRENOL (LANTHANUM CARBONATE) [Concomitant]
  3. RIONA (FERRIC CITRATE) FILM-COATED TABLET [Suspect]
     Active Substance: FERRIC CITRATE ANHYDROUS
     Indication: HYPERPHOSPHATAEMIA
     Route: 048
     Dates: start: 20141001, end: 20141126
  4. TRANSAMIN (TRANEXAMIC ACID) [Concomitant]
  5. LANDSEN (CLONAZEPAM) [Concomitant]

REACTIONS (2)
  - Serum ferritin increased [None]
  - Alanine aminotransferase increased [None]

NARRATIVE: CASE EVENT DATE: 20150106
